FAERS Safety Report 4876335-5 (Version None)
Quarter: 2005Q4

REPORT INFORMATION
  Report Type: 
  Country: None (occurrence: None)
  Receive Date: 20051206
  Receipt Date: 20051013
  Transmission Date: 20060501
  Serious: No
  Sender: FDA-Public Use
  Company Number: USA0510110804

PATIENT
  Age: 65 Year
  Sex: Female

DRUGS (3)
  1. CYMBALTA [Suspect]
     Indication: DIABETIC NEUROPATHY
     Route: 065
     Dates: start: 20050906, end: 20050927
  2. CYMBALTA [Suspect]
     Indication: NEURALGIA
     Route: 065
     Dates: start: 20050906, end: 20050927
  3. METHADONE [Concomitant]

REACTIONS (3)
  - HALLUCINATION [None]
  - NIGHTMARE [None]
  - PSYCHOTIC DISORDER [None]
